FAERS Safety Report 14881918 (Version 1)
Quarter: 2018Q2

REPORT INFORMATION
  Report Type: Spontaneous
  Country: US (occurrence: US)
  Receive Date: 20180511
  Receipt Date: 20180511
  Transmission Date: 20180711
  Serious: No
  Sender: FDA-Public Use
  Company Number: US-PFIZER INC-2018194019

PATIENT

DRUGS (1)
  1. XANAX [Suspect]
     Active Substance: ALPRAZOLAM
     Dosage: 0.05 MG, 2X/DAY (ON 0.50 AND TAKES 2 OF THOSE A DAY TO EQUAL TO 1 MG)

REACTIONS (2)
  - Dyskinesia [Unknown]
  - Drug ineffective [Unknown]
